FAERS Safety Report 7605062-6 (Version None)
Quarter: 2011Q3

REPORT INFORMATION
  Report Type: 
  Country: None (occurrence: None)
  Receive Date: 20110713
  Receipt Date: 20080915
  Transmission Date: 20111222
  Serious: Yes (Hospitalization, Other)
  Sender: FDA-Public Use
  Company Number: US-BAYER-200833382NA

PATIENT
  Age: 81 Year
  Sex: Female
  Weight: 57 kg

DRUGS (28)
  1. PROTAMINE SULFATE [Concomitant]
     Dosage: 250 MG, UNK
     Dates: start: 20051021
  2. TOPROL-XL [Concomitant]
     Route: 048
  3. LIPITOR [Concomitant]
     Route: 048
  4. LIDOCAINE [Concomitant]
     Dosage: 200 MG, UNK
     Route: 042
     Dates: start: 20051021, end: 20051021
  5. PROPOFOL [Concomitant]
     Dosage: UNK
     Route: 042
     Dates: start: 20051021, end: 20051021
  6. VANCOMYCIN [Concomitant]
     Dosage: UNK
     Route: 061
     Dates: start: 20051021, end: 20051021
  7. SURGICEL ABSORBABLE HEMOSTATIC CONE [Concomitant]
     Dosage: UNK
     Route: 061
     Dates: start: 20051021, end: 20051021
  8. FRESH FROZEN PLASMA [Concomitant]
     Dosage: 1 U, UNK
     Route: 042
     Dates: start: 20051021, end: 20051021
  9. TRASYLOL [Suspect]
     Indication: AORTIC VALVE REPLACEMENT
     Dosage: 1 ML, TEST DOSE
     Route: 042
     Dates: start: 20051021, end: 20051021
  10. ACETYLSALICYLIC ACID SRT [Concomitant]
     Route: 048
  11. RED BLOOD CELLS [Concomitant]
     Dosage: 3 U, UNK
     Route: 042
     Dates: start: 20051021, end: 20051021
  12. TRASYLOL [Suspect]
     Indication: MITRAL VALVE REPLACEMENT
     Dosage: 200 ML LOADING DOSE
     Route: 042
     Dates: start: 20051021, end: 20051021
  13. TRASYLOL [Suspect]
     Dosage: 50CC/HOUR INFUSION
     Route: 042
     Dates: start: 20051021, end: 20051021
  14. NAPROXEN (ALEVE) [Concomitant]
     Route: 048
  15. HEPARIN [Concomitant]
     Dosage: 10000 U, PRIME
     Route: 042
     Dates: start: 20051021
  16. SUFENTANIL CITRATE [Concomitant]
     Dosage: UNK
     Route: 042
     Dates: start: 20051021, end: 20051021
  17. CLINDAMYCIN [Concomitant]
     Dosage: IRRIGATION
     Dates: start: 20051021, end: 20051021
  18. ANECTINE [Concomitant]
     Dosage: UNK
     Route: 042
     Dates: start: 20051021, end: 20051021
  19. LANOXIN [Concomitant]
     Route: 048
  20. COENZYME Q-GEL [Concomitant]
     Route: 048
  21. ALTACE [Concomitant]
     Route: 048
  22. VERSED [Concomitant]
     Dosage: UNK
     Route: 042
     Dates: start: 20051021, end: 20051021
  23. THROMBIN LOCAL SOLUTION [Concomitant]
     Dosage: UNK
     Route: 061
     Dates: start: 20051021, end: 20051021
  24. TRASYLOL [Suspect]
     Dosage: 2 MILLION KALLIKREIN INHIBITOR UNITS/ML
     Route: 042
     Dates: start: 20051021, end: 20051021
  25. HYDROCHLOROTHIAZIDE [Concomitant]
     Route: 048
  26. QUINAPRIL HCL [Concomitant]
     Route: 048
  27. COSEAL [Concomitant]
     Dosage: UNK
     Route: 061
     Dates: start: 20051021, end: 20051021
  28. PLATELETS [Concomitant]
     Dosage: 1 U, UNK
     Route: 042
     Dates: start: 20051021, end: 20051021

REACTIONS (8)
  - INJURY [None]
  - RENAL FAILURE [None]
  - ANXIETY [None]
  - ANHEDONIA [None]
  - UNEVALUABLE EVENT [None]
  - FEAR [None]
  - PAIN [None]
  - DEPRESSION [None]
